FAERS Safety Report 15188270 (Version 1)
Quarter: 2018Q3

REPORT INFORMATION
  Report Type: Report from Study
  Country: ES (occurrence: ES)
  Receive Date: 20180724
  Receipt Date: 20180724
  Transmission Date: 20181010
  Serious: Yes (Hospitalization)
  Sender: FDA-Public Use
  Company Number: ES-TEVA-2018-ES-870212

PATIENT
  Age: 65 Year
  Sex: Female

DRUGS (4)
  1. AUGMENTINE PLUS 1.000 MG/62,5 MG [Concomitant]
     Active Substance: AMOXICILLIN\CLAVULANIC ACID
     Indication: CELLULITIS
     Route: 048
     Dates: start: 20160803
  2. IBUPROFENO (1769A) [Suspect]
     Active Substance: IBUPROFEN
     Route: 048
     Dates: start: 20160803, end: 20160822
  3. ENANTYUM 25 MG COMPRIMIDOS, 20 COMPRIMIDOS [Suspect]
     Active Substance: DEXKETOPROFEN TROMETAMOL
     Route: 048
     Dates: start: 20160803, end: 20160822
  4. FLUOXETINA (2331A) [Concomitant]
     Active Substance: FLUOXETINE HYDROCHLORIDE
     Indication: DEPRESSIVE SYMPTOM
     Route: 048
     Dates: start: 20150720

REACTIONS (1)
  - Lower gastrointestinal haemorrhage [Recovering/Resolving]

NARRATIVE: CASE EVENT DATE: 20160822
